FAERS Safety Report 9184375 (Version 1)
Quarter: 2012Q4

REPORT INFORMATION
  Report Type: 
  Country: US (occurrence: US)
  Receive Date: 20121031
  Receipt Date: 20121031
  Transmission Date: 20130627
  Serious: Yes (Death, Hospitalization, Other)
  Sender: FDA-Public Use
  Company Number: US-ELI_LILLY_AND_COMPANY-US201210008634

PATIENT
  Age: 75 Year
  Sex: Male

DRUGS (5)
  1. GEMCITABINE HYDROCHLORIDE [Suspect]
     Indication: PANCREATIC CARCINOMA NON-RESECTABLE
     Dosage: 200 mg/m2, weekly (1/W)
  2. GEMCITABINE HYDROCHLORIDE [Suspect]
     Dosage: UNK, unknown
  3. CETUXIMAB [Concomitant]
     Indication: PANCREATIC CARCINOMA NON-RESECTABLE
     Dosage: 400 mg/m2, single
  4. CETUXIMAB [Concomitant]
     Dosage: 250 mg/m2, weekly (1/W)
  5. THERAPEUTIC RADIOPHARMACEUTICALS [Concomitant]
     Indication: PANCREATIC CARCINOMA NON-RESECTABLE
     Dosage: 12.6 UNK, UNK

REACTIONS (13)
  - Neoplasm progression [Fatal]
  - Metastases to liver [Unknown]
  - Jaundice cholestatic [Unknown]
  - Vomiting [Unknown]
  - Nausea [Unknown]
  - Dehydration [Unknown]
  - Klebsiella bacteraemia [Unknown]
  - Erosive oesophagitis [Unknown]
  - Device occlusion [Unknown]
  - Decreased appetite [Unknown]
  - Device related infection [Unknown]
  - Blood magnesium decreased [Unknown]
  - Rash [Unknown]
